FAERS Safety Report 24077634 (Version 1)
Quarter: 2024Q3

REPORT INFORMATION
  Report Type: Spontaneous
  Country: US (occurrence: US)
  Receive Date: 20240711
  Receipt Date: 20240711
  Transmission Date: 20241016
  Serious: No
  Sender: PIERRE FABRE MEDICAMENT
  Company Number: US-PFM-2023-02947

PATIENT
  Sex: Male
  Weight: 6.349 kg

DRUGS (3)
  1. HEMANGEOL [Suspect]
     Active Substance: PROPRANOLOL HYDROCHLORIDE
     Indication: Haemangioma
     Dosage: 0.6 ML, BID (2/DAY) FOR ONE WEEK
     Route: 048
  2. HEMANGEOL [Suspect]
     Active Substance: PROPRANOLOL HYDROCHLORIDE
     Dosage: INCREASE 1.2 ML, BID (2/DAY) FOR ONE WEEK
     Route: 048
  3. HEMANGEOL [Suspect]
     Active Substance: PROPRANOLOL HYDROCHLORIDE
     Dosage: INCREASE TO 1.6 ML, BID (2/DAY) FOR MAINTENANCE DOSING
     Route: 048

REACTIONS (1)
  - Illness [Unknown]
